FAERS Safety Report 19014647 (Version 1)
Quarter: 2021Q1

REPORT INFORMATION
  Report Type: Spontaneous
  Country: US (occurrence: US)
  Receive Date: 20210316
  Receipt Date: 20210316
  Transmission Date: 20210420
  Serious: No
  Sender: FDA-Public Use
  Company Number: US-GW PHARMA-202103USGW01105

PATIENT

DRUGS (1)
  1. EPIDIOLEX [Suspect]
     Active Substance: CANNABIDIOL
     Indication: EPILEPSY
     Dosage: 10 MG/KG/DAY, 450 MILLIGRAM, BID
     Route: 048
     Dates: start: 20210218

REACTIONS (2)
  - Product use in unapproved indication [Unknown]
  - Chest pain [Unknown]

NARRATIVE: CASE EVENT DATE: 2021
